FAERS Safety Report 10008313 (Version 2)
Quarter: 2014Q1

REPORT INFORMATION
  Report Type: Spontaneous
  Country: US (occurrence: US)
  Receive Date: 20140313
  Receipt Date: 20140313
  Transmission Date: 20141002
  Serious: Yes (Hospitalization)
  Sender: FDA-Public Use
  Company Number: US-GILEAD-2013-0074050

PATIENT
  Sex: Female

DRUGS (3)
  1. LETAIRIS [Suspect]
     Indication: PULMONARY HYPERTENSION
     Dosage: 5 MG, QD
     Route: 048
     Dates: start: 20130413
  2. ADCIRCA [Concomitant]
  3. COUMADIN                           /00014802/ [Concomitant]

REACTIONS (3)
  - Fluid retention [Unknown]
  - Oedema peripheral [Unknown]
  - Headache [Unknown]
